FAERS Safety Report 21637707 (Version 2)
Quarter: 2022Q4

REPORT INFORMATION
  Report Type: Spontaneous
  Country: US (occurrence: US)
  Receive Date: 20221124
  Receipt Date: 20221220
  Transmission Date: 20230112
  Serious: Yes (Other)
  Sender: FDA-Public Use
  Company Number: US-BRISTOL-MYERS SQUIBB COMPANY-2022-142356

PATIENT
  Age: 72 Year
  Sex: Male
  Weight: 103.87 kg

DRUGS (1)
  1. REVLIMID [Suspect]
     Active Substance: LENALIDOMIDE
     Indication: Plasma cell myeloma
     Dosage: 21D ON 7D OFF
     Route: 048

REACTIONS (6)
  - Lower respiratory tract infection [Recovering/Resolving]
  - Fatigue [Recovering/Resolving]
  - Viral infection [Unknown]
  - Bacterial infection [Unknown]
  - Asthenia [Unknown]
  - Deep vein thrombosis [Unknown]
